FAERS Safety Report 19011858 (Version 2)
Quarter: 2021Q3

REPORT INFORMATION
  Report Type: Report from Study
  Country: IN (occurrence: IN)
  Receive Date: 20210316
  Receipt Date: 20210806
  Transmission Date: 20211014
  Serious: Yes (Other)
  Sender: FDA-Public Use
  Company Number: NVSC2021IN055901

PATIENT
  Age: 74 Year
  Sex: Male

DRUGS (2)
  1. MEQSEL [Suspect]
     Active Substance: TRAMETINIB
     Indication: NON-SMALL CELL LUNG CANCER
     Dosage: 2 MG, QD
     Route: 048
     Dates: start: 20200521
  2. RAFINLAR [Suspect]
     Active Substance: DABRAFENIB
     Indication: NON-SMALL CELL LUNG CANCER
     Dosage: 150 MG, BID
     Route: 048
     Dates: start: 20200521

REACTIONS (7)
  - Chest pain [Unknown]
  - Dyspnoea [Recovered/Resolved]
  - Malignant pleural effusion [Not Recovered/Not Resolved]
  - COVID-19 [Recovered/Resolved]
  - Groin pain [Recovered/Resolved]
  - Cough [Not Recovered/Not Resolved]
  - Pain [Recovering/Resolving]

NARRATIVE: CASE EVENT DATE: 20201001
